FAERS Safety Report 16744611 (Version 1)
Quarter: 2019Q3

REPORT INFORMATION
  Report Type: Spontaneous
  Country: DE (occurrence: DE)
  Receive Date: 20190827
  Receipt Date: 20190827
  Transmission Date: 20191005
  Serious: Yes (Hospitalization, Other)
  Sender: FDA-Public Use
  Company Number: DE-PFIZER INC-2019362277

PATIENT
  Age: 81 Year
  Sex: Female
  Weight: 53 kg

DRUGS (9)
  1. XARELTO [Suspect]
     Active Substance: RIVAROXABAN
     Dosage: 20 MG, 1X/DAY (20 MG EVERY DAYS)
     Route: 048
  2. PREGABALIN. [Suspect]
     Active Substance: PREGABALIN
     Dosage: 100 MG, 1X/DAY (100 MG EVERY DAYS 4 SEPARATED DOSES)
     Route: 048
  3. TORASEMIDE [Suspect]
     Active Substance: TORSEMIDE
     Dosage: 2 DF, 1X/DAY (2 DF EVERY DAYS 2 SEPARATED DOSES)
     Route: 048
  4. METAMIZOLE [Suspect]
     Active Substance: METAMIZOLE
     Dosage: 4 DF, 1X/DAY (4 DF EVERY DAYS 4 SEPARATED DOSES)
     Route: 048
  5. SIMVASTATIN. [Suspect]
     Active Substance: SIMVASTATIN
     Dosage: 20 MG, 1X/DAY (20 MG EVERY DAYS)
     Route: 048
  6. ACICLOVIR [Suspect]
     Active Substance: ACYCLOVIR
     Dosage: 3 DF, 1X/DAY (3 DF EVERY DAYS 3 SEPARATE DOSES)
     Route: 048
  7. OMEPRAZOLE. [Suspect]
     Active Substance: OMEPRAZOLE
     Dosage: 20 MG, 1X/DAY (20 MG EVERY DAYS)
     Route: 048
  8. PROPYCIL [Suspect]
     Active Substance: PROPYLTHIOURACIL
     Indication: HYPERTHYROIDISM
     Dosage: 50 MG, 1X/DAY (50 MG EVERY DAYS)
     Route: 048
     Dates: end: 201907
  9. DEKRISTOL [Suspect]
     Active Substance: CHOLECALCIFEROL
     Dosage: 2 DF, MONTHLY (2 DF EVERY MONTHS 2 SEPARATE DOSES)
     Route: 048

REACTIONS (4)
  - Antineutrophil cytoplasmic antibody positive [Not Recovered/Not Resolved]
  - Haemoptysis [Not Recovered/Not Resolved]
  - Pneumonia [Not Recovered/Not Resolved]
  - Vasculitis [Not Recovered/Not Resolved]

NARRATIVE: CASE EVENT DATE: 201906
